FAERS Safety Report 15779064 (Version 2)
Quarter: 2019Q1

REPORT INFORMATION
  Report Type: Spontaneous
  Country: JP (occurrence: JP)
  Receive Date: 20190101
  Receipt Date: 20190123
  Transmission Date: 20190417
  Serious: Yes (Other)
  Sender: FDA-Public Use
  Company Number: JP-ROCHE-2238008

PATIENT
  Age: 55 Year
  Sex: Male

DRUGS (4)
  1. XOFLUZA [Suspect]
     Active Substance: BALOXAVIR MARBOXIL
     Indication: INFLUENZA
     Route: 048
     Dates: start: 20181221, end: 20181221
  2. CALONAL [Suspect]
     Active Substance: ACETAMINOPHEN
     Indication: INFLUENZA
     Route: 048
  3. NICHICODE [Suspect]
     Active Substance: CHLORPHENIRAMINE\DIHYDROCODEINE\METHYLEPHEDRINE
     Indication: INFLUENZA
     Route: 048
  4. HOKUNALIN [Suspect]
     Active Substance: TULOBUTEROL
     Indication: INFLUENZA
     Route: 062

REACTIONS (1)
  - Seizure [Recovered/Resolved]

NARRATIVE: CASE EVENT DATE: 20181223
